FAERS Safety Report 5512761-9 (Version None)
Quarter: 2007Q4

REPORT INFORMATION
  Report Type: 
  Country: None (occurrence: None)
  Receive Date: 20071112
  Receipt Date: 20071105
  Transmission Date: 20080405
  Serious: Yes (Other)
  Sender: FDA-Public Use
  Company Number: US-BRISTOL-MYERS SQUIBB COMPANY-13971072

PATIENT
  Age: 63 Year
  Sex: Male

DRUGS (2)
  1. MEGESTROL ACETATE [Suspect]
     Indication: NON-SMALL CELL LUNG CANCER
  2. ENOXAPARIN SODIUM [Suspect]

REACTIONS (3)
  - ADRENAL INSUFFICIENCY [None]
  - BLOOD TESTOSTERONE DECREASED [None]
  - DIZZINESS POSTURAL [None]
